FAERS Safety Report 8731555 (Version 4)
Quarter: 2012Q4

REPORT INFORMATION
  Report Type: 
  Country: US (occurrence: US)
  Receive Date: 20120820
  Receipt Date: 20121217
  Transmission Date: 20130627
  Serious: Yes (Other)
  Sender: FDA-Public Use
  Company Number: US-TEVA-354203USA

PATIENT
  Age: 20 Year
  Sex: Female

DRUGS (3)
  1. CLARAVIS [Suspect]
     Dosage: alternating QD and BID
     Route: 048
     Dates: start: 20120418, end: 20120810
  2. ORTHO TRI CYCLEN [Concomitant]
     Indication: CONTRACEPTION
  3. TAC 3 [Concomitant]
     Indication: ACNE CYSTIC
     Dosage: 6 Milligram Daily;

REACTIONS (2)
  - Unintended pregnancy [Unknown]
  - Drug dispensing error [Unknown]
